FAERS Safety Report 6489569-3 (Version None)
Quarter: 2009Q4

REPORT INFORMATION
  Report Type: 
  Country: None (occurrence: None)
  Receive Date: 20091210
  Receipt Date: 20091123
  Transmission Date: 20100525
  Serious: Yes (Hospitalization, Other)
  Sender: FDA-Public Use
  Company Number: US-SANOFI-AVENTIS-A03200905015

PATIENT
  Age: 59 Year
  Sex: Male
  Weight: 113 kg

DRUGS (13)
  1. UROXATRAL [Suspect]
     Indication: BRACHYTHERAPY TO PROSTATE
     Route: 048
     Dates: start: 20091014, end: 20091023
  2. UROXATRAL [Suspect]
     Route: 048
     Dates: start: 20091014, end: 20091023
  3. CELEXA [Concomitant]
     Dosage: UNK
  4. VALSARTAN [Concomitant]
     Indication: HYPERTENSION
     Dosage: UNK
     Route: 048
     Dates: start: 20040101
  5. FENOFIBRATE [Concomitant]
     Dosage: UNK
     Route: 065
     Dates: start: 20040101
  6. ACETYLSALICYLIC ACID [Concomitant]
     Dosage: UNK
     Route: 048
     Dates: start: 20040101
  7. MULTI-VITAMINS [Concomitant]
     Indication: DRUG USE FOR UNKNOWN INDICATION
     Dosage: UNK
     Route: 065
  8. FISH OIL [Concomitant]
     Indication: DRUG USE FOR UNKNOWN INDICATION
     Dosage: UNK
     Route: 065
  9. PENTA-TRIAMTERENE HCTZ [Concomitant]
     Indication: HYPERTENSION
     Dosage: 37.5/25 MG DAILY
     Route: 065
     Dates: start: 20040101
  10. PENTA-TRIAMTERENE HCTZ [Concomitant]
     Indication: FLUID RETENTION
     Dosage: 37.5/25 MG DAILY
     Route: 065
     Dates: start: 20040101
  11. PROTONIX [Concomitant]
     Route: 065
  12. SUPER STRESS MEGA B COMPLEX 1000 C [Concomitant]
     Route: 065
  13. STOOL SOFTENER [Concomitant]
     Route: 065

REACTIONS (12)
  - ATELECTASIS [None]
  - COUGH [None]
  - FEELING ABNORMAL [None]
  - GLOSSODYNIA [None]
  - HYPERSENSITIVITY [None]
  - INCREASED UPPER AIRWAY SECRETION [None]
  - NASAL CONGESTION [None]
  - OEDEMA MOUTH [None]
  - OEDEMA PERIPHERAL [None]
  - OXYGEN SATURATION DECREASED [None]
  - PULMONARY EMBOLISM [None]
  - SWOLLEN TONGUE [None]
